FAERS Safety Report 24033708 (Version 3)
Quarter: 2024Q3

REPORT INFORMATION
  Report Type: Spontaneous
  Country: US (occurrence: US)
  Receive Date: 20240701
  Receipt Date: 20240710
  Transmission Date: 20241017
  Serious: No
  Sender: ROCHE
  Company Number: US-ROCHE-3527573

PATIENT
  Sex: Female

DRUGS (9)
  1. EVRYSDI [Suspect]
     Active Substance: RISDIPLAM
     Indication: Spinal muscular atrophy
     Route: 065
     Dates: start: 20201110
  2. EVRYSDI [Suspect]
     Active Substance: RISDIPLAM
     Route: 065
     Dates: start: 20231221, end: 20240101
  3. EVRYSDI [Suspect]
     Active Substance: RISDIPLAM
     Route: 065
     Dates: start: 20240102, end: 20240113
  4. EVRYSDI [Suspect]
     Active Substance: RISDIPLAM
     Route: 065
     Dates: start: 20240114, end: 20240126
  5. EVRYSDI [Suspect]
     Active Substance: RISDIPLAM
     Route: 065
     Dates: start: 20240127, end: 20240206
  6. EVRYSDI [Suspect]
     Active Substance: RISDIPLAM
     Dosage: LAST DOSE: 6.6 ML LEFT OVER 0.5
     Route: 065
     Dates: start: 20240207, end: 20240218
  7. EVRYSDI [Suspect]
     Active Substance: RISDIPLAM
     Route: 065
     Dates: start: 20240219, end: 20240301
  8. EVRYSDI [Suspect]
     Active Substance: RISDIPLAM
     Route: 065
     Dates: start: 20240302, end: 20240313
  9. EVRYSDI [Suspect]
     Active Substance: RISDIPLAM
     Route: 065
     Dates: start: 20240314

REACTIONS (2)
  - Muscular weakness [Unknown]
  - Incorrect dose administered [Unknown]
